FAERS Safety Report 9399222 (Version 1)
Quarter: 2013Q3

REPORT INFORMATION
  Report Type: Spontaneous
  Country: None (occurrence: None)
  Receive Date: 20130709
  Receipt Date: 20130709
  Transmission Date: 20140515
  Serious: Yes (Disabling, Other)
  Sender: FDA-Public Use
  Company Number: 2013/141

PATIENT
  Age: 67 Year
  Sex: Female
  Weight: 71.5 kg

DRUGS (2)
  1. TERBINAFINE [Suspect]
     Indication: ONYCHOMYCOSIS
     Route: 048
     Dates: start: 20130328, end: 20130430
  2. ADCAL [Concomitant]

REACTIONS (2)
  - Burning sensation [None]
  - Pain in extremity [None]
